FAERS Safety Report 15855622 (Version 2)
Quarter: 2019Q1

REPORT INFORMATION
  Report Type: Report from Study
  Country: US (occurrence: US)
  Receive Date: 20190122
  Receipt Date: 20190131
  Transmission Date: 20190417
  Serious: Yes (Hospitalization)
  Sender: FDA-Public Use
  Company Number: US-BAUSCH-BL-2019-002066

PATIENT
  Age: 71 Year
  Sex: Female
  Weight: 51.3 kg

DRUGS (23)
  1. POTASSIUM [Concomitant]
     Active Substance: POTASSIUM
     Indication: SUPPLEMENTATION THERAPY
     Dates: start: 20180717
  2. OXALIPLATIN. [Suspect]
     Active Substance: OXALIPLATIN
     Dosage: REINTRODUCED
     Route: 065
     Dates: start: 20181211
  3. AMLODIPINE [Concomitant]
     Active Substance: AMLODIPINE BESYLATE
     Indication: PRODUCT USED FOR UNKNOWN INDICATION
  4. ALPRAZOLAM. [Concomitant]
     Active Substance: ALPRAZOLAM
     Indication: PRODUCT USED FOR UNKNOWN INDICATION
     Dates: start: 20180711
  5. FLUOROURACIL. [Suspect]
     Active Substance: FLUOROURACIL
     Dosage: CYCLIC (QCY)
     Route: 065
     Dates: start: 20181129, end: 20181129
  6. METOPROLOL. [Concomitant]
     Active Substance: METOPROLOL
     Indication: PRODUCT USED FOR UNKNOWN INDICATION
  7. FLUOROURACIL. [Suspect]
     Active Substance: FLUOROURACIL
     Indication: PANCREATIC CARCINOMA METASTATIC
     Dosage: CYCLIC (QCY)
     Route: 065
     Dates: start: 20181101, end: 20181101
  8. OXALIPLATIN. [Suspect]
     Active Substance: OXALIPLATIN
     Dosage: CYCLIC (QCY)
     Route: 065
     Dates: start: 20181030, end: 20181030
  9. OXALIPLATIN. [Suspect]
     Active Substance: OXALIPLATIN
     Dosage: CYCLIC (QCY)
     Route: 065
     Dates: start: 20181125, end: 20181125
  10. OXALIPLATIN. [Suspect]
     Active Substance: OXALIPLATIN
     Indication: PANCREATIC CARCINOMA METASTATIC
     Dosage: CYCLIC (QCY)
     Route: 058
     Dates: start: 20180711, end: 20180711
  11. LEUCOVORIN. [Suspect]
     Active Substance: LEUCOVORIN
     Dosage: CYCLIC (QCY)
     Route: 065
     Dates: start: 20181030, end: 20181030
  12. LEUCOVORIN. [Suspect]
     Active Substance: LEUCOVORIN
     Dosage: REINTRODUCED
     Route: 065
     Dates: start: 20181211
  13. FLUOROURACIL. [Suspect]
     Active Substance: FLUOROURACIL
     Dosage: REINTRODUCED
     Route: 065
     Dates: start: 20181211
  14. METFORMIN [Concomitant]
     Active Substance: METFORMIN HYDROCHLORIDE
     Indication: PRODUCT USED FOR UNKNOWN INDICATION
  15. PANTOPRAZOLE [Concomitant]
     Active Substance: PANTOPRAZOLE
     Indication: PRODUCT USED FOR UNKNOWN INDICATION
     Dates: start: 20180711
  16. ZOLPIDEM TARTRATE. [Concomitant]
     Active Substance: ZOLPIDEM TARTRATE
     Indication: MINERAL SUPPLEMENTATION
  17. FLUOROURACIL. [Suspect]
     Active Substance: FLUOROURACIL
     Dosage: REINTRODUCED
     Route: 065
     Dates: start: 20181211
  18. LEUCOVORIN. [Suspect]
     Active Substance: LEUCOVORIN
     Indication: PANCREATIC CARCINOMA METASTATIC
     Dosage: CYCLIC (QCY)
     Route: 042
     Dates: start: 20180711, end: 20180711
  19. LEUCOVORIN. [Suspect]
     Active Substance: LEUCOVORIN
     Dosage: CYCLIC (QCY)
     Route: 065
     Dates: start: 20181127, end: 20181127
  20. OXALIPLATIN. [Suspect]
     Active Substance: OXALIPLATIN
     Dosage: CYCLIC (QCY)
     Route: 042
     Dates: start: 20180711, end: 20180711
  21. FLUOROURACIL. [Suspect]
     Active Substance: FLUOROURACIL
     Indication: PANCREATIC CARCINOMA METASTATIC
     Route: 040
     Dates: start: 20180711, end: 20180711
  22. FLUOROURACIL. [Suspect]
     Active Substance: FLUOROURACIL
     Route: 042
     Dates: start: 20180711, end: 20180711
  23. NORCO [Concomitant]
     Active Substance: ACETAMINOPHEN\HYDROCODONE BITARTRATE
     Indication: PRODUCT USED FOR UNKNOWN INDICATION

REACTIONS (1)
  - Oedema peripheral [Recovered/Resolved]

NARRATIVE: CASE EVENT DATE: 20181129
